FAERS Safety Report 8953180 (Version 1)
Quarter: 2012Q4

REPORT INFORMATION
  Report Type: 
  Country: GB (occurrence: GB)
  Receive Date: 20121206
  Receipt Date: 20121206
  Transmission Date: 20130627
  Serious: Yes (Other)
  Sender: FDA-Public Use
  Company Number: GB-ACCORD-015444

PATIENT
  Sex: Male

DRUGS (2)
  1. SIMVASTATIN [Suspect]
     Indication: DOUBLE VESSEL BYPASS GRAFT
     Dosage: Ongoing
  2. DILTIAZEM [Suspect]
     Indication: DOUBLE VESSEL BYPASS GRAFT
     Dosage: Intended for six weeks, continued for nearly 5 months

REACTIONS (3)
  - Oedema peripheral [Unknown]
  - Bladder dysfunction [Unknown]
  - Medication error [Unknown]
